FAERS Safety Report 6075874-1 (Version None)
Quarter: 2009Q1

REPORT INFORMATION
  Report Type: 
  Country: None (occurrence: None)
  Receive Date: 20090121
  Receipt Date: 20080428
  Transmission Date: 20090719
  Serious: Yes (Other)
  Sender: FDA-Public Use
  Company Number: US-WYE-H03877408

PATIENT
  Age: 61 Year
  Sex: Female

DRUGS (4)
  1. PREMPRO [Suspect]
     Indication: HOT FLUSH
  2. PREMPRO [Suspect]
     Indication: MOOD SWINGS
  3. PREMPHASE (PREMARIN;CYCRIN 14/14) [Suspect]
     Indication: HOT FLUSH
  4. PREMPHASE (PREMARIN;CYCRIN 14/14) [Suspect]
     Indication: MOOD SWINGS

REACTIONS (1)
  - BREAST CANCER [None]
